FAERS Safety Report 21167355 (Version 1)
Quarter: 2022Q3

REPORT INFORMATION
  Report Type: Spontaneous
  Country: US (occurrence: None)
  Receive Date: 20220803
  Receipt Date: 20220803
  Transmission Date: 20221027
  Serious: No
  Sender: FDA-Public Use
  Company Number: None

PATIENT
  Age: 47 Year
  Sex: Female

DRUGS (1)
  1. TREMFYA [Suspect]
     Active Substance: GUSELKUMAB
     Indication: Psoriasis
     Dosage: INJECT 100MG  SUBCUTANEOUSLY  AT WEEK 0 AND WEEK 4   AS DIRECTED
     Route: 058
     Dates: start: 202108

REACTIONS (1)
  - Electroconvulsive therapy [None]
